FAERS Safety Report 5133847-7 (Version None)
Quarter: 2006Q4

REPORT INFORMATION
  Report Type: 
  Country: None (occurrence: None)
  Receive Date: 20061018
  Receipt Date: 20061003
  Transmission Date: 20070319
  Serious: Yes (Hospitalization)
  Sender: FDA-Public Use
  Company Number: 2006001911

PATIENT
  Age: 47 Year
  Sex: Male
  Weight: 68 kg

DRUGS (3)
  1. ERLOTINIB (TABLET) [Suspect]
     Indication: TONGUE NEOPLASM MALIGNANT STAGE UNSPECIFIED
     Dosage: (QD), ORAL
     Route: 048
  2. BEVACIZUMAB (INJECTION FOR INFUSION) [Suspect]
     Indication: TONGUE NEOPLASM MALIGNANT STAGE UNSPECIFIED
     Dosage: 100 MG/M^2 (Q2W), INTRAVENOUS
     Route: 042
     Dates: end: 20060301
  3. CISPLATIN [Concomitant]

REACTIONS (9)
  - ANXIETY [None]
  - EAR PAIN [None]
  - INADEQUATE ANALGESIA [None]
  - MUSCLE STRAIN [None]
  - OBSTRUCTIVE AIRWAYS DISORDER [None]
  - ODYNOPHAGIA [None]
  - PAROTITIS [None]
  - TRISMUS [None]
  - VIRAL INFECTION [None]
